FAERS Safety Report 6899572-7 (Version None)
Quarter: 2010Q3

REPORT INFORMATION
  Report Type: 
  Country: None (occurrence: None)
  Receive Date: 20100729
  Receipt Date: 20100713
  Transmission Date: 20110219
  Serious: Yes (Disabling, Other)
  Sender: FDA-Public Use
  Company Number: ACO_01421_2010

PATIENT
  Sex: Female
  Weight: 54.4316 kg

DRUGS (2)
  1. AMPYRA [Suspect]
     Indication: GAIT DISTURBANCE
     Dosage: 10 MG BID ORAL
     Route: 048
     Dates: start: 20100329, end: 20100630
  2. LORAZEPAM [Concomitant]

REACTIONS (7)
  - APHAGIA [None]
  - CONDITION AGGRAVATED [None]
  - HEAD TITUBATION [None]
  - MULTIPLE SCLEROSIS [None]
  - MUSCULOSKELETAL STIFFNESS [None]
  - SPEECH DISORDER [None]
  - TREMOR [None]
